FAERS Safety Report 8366937-6 (Version None)
Quarter: 2012Q2

REPORT INFORMATION
  Report Type: 
  Country: None (occurrence: None)
  Receive Date: 20120517
  Receipt Date: 20120503
  Transmission Date: 20120825
  Serious: Yes (Other)
  Sender: FDA-Public Use
  Company Number: AR-ROCHE-1065648

PATIENT
  Age: 54 Year
  Sex: Male

DRUGS (2)
  1. LUCENTIS [Suspect]
     Indication: VISUAL IMPAIRMENT
     Route: 050
  2. AVASTIN [Suspect]
     Indication: VISUAL IMPAIRMENT
     Route: 050

REACTIONS (2)
  - EYE DISORDER [None]
  - DRUG INEFFECTIVE [None]
